FAERS Safety Report 5726629-6 (Version None)
Quarter: 2008Q2

REPORT INFORMATION
  Report Type: 
  Country: None (occurrence: None)
  Receive Date: 20080502
  Receipt Date: 20080422
  Transmission Date: 20081010
  Serious: Yes (Hospitalization)
  Sender: FDA-Public Use
  Company Number: DK-JNJFOC-20080405627

PATIENT
  Age: 32 Year
  Sex: Female

DRUGS (8)
  1. INVEGA [Suspect]
     Route: 048
  2. INVEGA [Suspect]
     Indication: DRUG USE FOR UNKNOWN INDICATION
     Route: 048
  3. ZELDOX [Concomitant]
  4. TRUXAL [Concomitant]
  5. SERTINDOLE [Concomitant]
  6. EFFEXOR [Concomitant]
  7. OXAPAX [Concomitant]
  8. OTHER THEREPEUTIC MEDICATION [Concomitant]

REACTIONS (3)
  - CONVULSION [None]
  - ELECTROCARDIOGRAM QT PROLONGED [None]
  - TACHYCARDIA [None]
